FAERS Safety Report 13000174 (Version 2)
Quarter: 2016Q4

REPORT INFORMATION
  Report Type: Spontaneous
  Country: US (occurrence: US)
  Receive Date: 20161205
  Receipt Date: 20161205
  Transmission Date: 20170207
  Serious: No
  Sender: FDA-Public Use
  Company Number: US-ASTRAZENECA-2016SF17684

PATIENT
  Age: 697 Month
  Sex: Male
  Weight: 61.2 kg

DRUGS (12)
  1. TUDORZA PRESSAIR [Suspect]
     Active Substance: ACLIDINIUM BROMIDE
     Indication: DYSPNOEA
     Route: 055
     Dates: start: 201312
  2. ADVAIR DISKUS [Concomitant]
     Active Substance: FLUTICASONE PROPIONATE\SALMETEROL XINAFOATE
     Indication: MALAISE
     Dosage: 250-50, ONE PUFF TWICE A DAILY
     Route: 055
     Dates: start: 201312
  3. TUDORZA PRESSAIR [Suspect]
     Active Substance: ACLIDINIUM BROMIDE
     Indication: EMPHYSEMA
     Route: 055
     Dates: start: 201312
  4. PROAIR HFA [Concomitant]
     Active Substance: ALBUTEROL SULFATE
     Indication: MALAISE
     Dosage: TWO PUFFS EVERY 3 TO 4 HOURS AS NEEDED
     Route: 055
     Dates: start: 201312
  5. PROAIR HFA [Concomitant]
     Active Substance: ALBUTEROL SULFATE
     Indication: TOBACCO USER
     Dosage: TWO PUFFS EVERY 3 TO 4 HOURS AS NEEDED
     Route: 055
     Dates: start: 201312
  6. ADVAIR DISKUS [Concomitant]
     Active Substance: FLUTICASONE PROPIONATE\SALMETEROL XINAFOATE
     Indication: DYSPNOEA
     Dosage: 250-50, ONE PUFF TWICE A DAILY
     Route: 055
     Dates: start: 201312
  7. ADVAIR DISKUS [Concomitant]
     Active Substance: FLUTICASONE PROPIONATE\SALMETEROL XINAFOATE
     Indication: EMPHYSEMA
     Dosage: 250-50, ONE PUFF TWICE A DAILY
     Route: 055
     Dates: start: 201312
  8. TUDORZA PRESSAIR [Suspect]
     Active Substance: ACLIDINIUM BROMIDE
     Indication: MALAISE
     Route: 055
     Dates: start: 201312
  9. TUDORZA PRESSAIR [Suspect]
     Active Substance: ACLIDINIUM BROMIDE
     Indication: TOBACCO USER
     Route: 055
     Dates: start: 201312
  10. ADVAIR DISKUS [Concomitant]
     Active Substance: FLUTICASONE PROPIONATE\SALMETEROL XINAFOATE
     Indication: TOBACCO USER
     Dosage: 250-50, ONE PUFF TWICE A DAILY
     Route: 055
     Dates: start: 201312
  11. PROAIR HFA [Concomitant]
     Active Substance: ALBUTEROL SULFATE
     Indication: DYSPNOEA
     Dosage: TWO PUFFS EVERY 3 TO 4 HOURS AS NEEDED
     Route: 055
     Dates: start: 201312
  12. PROAIR HFA [Concomitant]
     Active Substance: ALBUTEROL SULFATE
     Indication: EMPHYSEMA
     Dosage: TWO PUFFS EVERY 3 TO 4 HOURS AS NEEDED
     Route: 055
     Dates: start: 201312

REACTIONS (5)
  - Device failure [Unknown]
  - Malaise [Unknown]
  - Device malfunction [Unknown]
  - Drug dose omission [Unknown]
  - Drug administered in wrong device [Unknown]

NARRATIVE: CASE EVENT DATE: 201607
